FAERS Safety Report 21129067 (Version 1)
Quarter: 2022Q3

REPORT INFORMATION
  Report Type: Spontaneous
  Country: PL (occurrence: None)
  Receive Date: 20220725
  Receipt Date: 20220725
  Transmission Date: 20221027
  Serious: Yes (Life-Threatening, Hospitalization)
  Sender: FDA-Public Use
  Company Number: 2022A227259

PATIENT
  Age: 80 Year
  Sex: Female

DRUGS (29)
  1. QUETIAPINE FUMARATE [Suspect]
     Active Substance: QUETIAPINE FUMARATE
     Indication: Product used for unknown indication
     Route: 065
  2. SPIRONOLACTONE [Suspect]
     Active Substance: SPIRONOLACTONE
     Indication: Product used for unknown indication
     Route: 065
  3. TRAMADOL HYDROCHLORIDE [Suspect]
     Active Substance: TRAMADOL HYDROCHLORIDE
     Indication: Product used for unknown indication
     Route: 065
  4. ALLOPURINOL [Suspect]
     Active Substance: ALLOPURINOL
     Indication: Product used for unknown indication
     Route: 065
  5. DOXAZOSIN MESYLATE [Suspect]
     Active Substance: DOXAZOSIN MESYLATE
     Indication: Product used for unknown indication
     Route: 065
  6. ASPIRIN [Suspect]
     Active Substance: ASPIRIN
     Indication: Product used for unknown indication
     Route: 065
  7. BISOPROLOL FUMARATE [Suspect]
     Active Substance: BISOPROLOL FUMARATE
     Indication: Product used for unknown indication
     Route: 065
  8. EYLEA [Suspect]
     Active Substance: AFLIBERCEPT
     Indication: Neovascular age-related macular degeneration
     Dosage: CODE NOT BROKEN (INTRAVITREALLY)
     Route: 065
     Dates: start: 20220217
  9. ESTAZOLAM [Suspect]
     Active Substance: ESTAZOLAM
     Indication: Product used for unknown indication
     Route: 065
  10. RANITIDINE HYDROCHLORIDE [Suspect]
     Active Substance: RANITIDINE HYDROCHLORIDE
     Indication: Product used for unknown indication
     Route: 065
  11. ATORVASTATIN [Suspect]
     Active Substance: ATORVASTATIN
     Indication: Product used for unknown indication
     Route: 065
  12. CLONIDINE [Suspect]
     Active Substance: CLONIDINE
     Indication: Hypertension
     Route: 065
     Dates: start: 20211030
  13. LEVOTHYROXINE SODIUM [Suspect]
     Active Substance: LEVOTHYROXINE SODIUM
     Indication: Product used for unknown indication
     Route: 065
  14. CARDURA [Concomitant]
     Active Substance: DOXAZOSIN MESYLATE
     Dates: start: 20211030
  15. KETREL [Concomitant]
     Dates: start: 20191209
  16. TROPICAMIDE [Concomitant]
     Active Substance: TROPICAMIDE
     Dates: start: 20220217
  17. VIGAMOX [Concomitant]
     Active Substance: MOXIFLOXACIN HYDROCHLORIDE
     Dates: start: 20220217
  18. LIDOCAINE HYDROCHLORIDE [Concomitant]
     Active Substance: LIDOCAINE HYDROCHLORIDE
     Dates: start: 20220217
  19. VALZEK [Concomitant]
     Dates: start: 20220419, end: 20220518
  20. LERCANIDIPINE [Concomitant]
     Active Substance: LERCANIDIPINE
     Dates: start: 20211030
  21. ALCAINE [Concomitant]
     Active Substance: PROPARACAINE HYDROCHLORIDE
  22. VINPOVEN FORTE [Concomitant]
  23. EUTHYROX [Concomitant]
     Active Substance: LEVOTHYROXINE SODIUM
     Dates: start: 1971
  24. ALLOPURINOL [Concomitant]
     Active Substance: ALLOPURINOL
     Dates: start: 2015
  25. TULIP [Concomitant]
     Dates: start: 2010
  26. POVIDONE-IODINE [Concomitant]
     Active Substance: POVIDONE-IODINE
     Dates: start: 20220217
  27. ANASTROZOLE [Concomitant]
     Active Substance: ANASTROZOLE
  28. ASPIRIN [Concomitant]
     Active Substance: ASPIRIN
     Dates: start: 2001
  29. NEBIVOLOL [Concomitant]
     Active Substance: NEBIVOLOL
     Dates: start: 20220419, end: 20220518

REACTIONS (3)
  - Hypertension [Recovered/Resolved]
  - Blood sodium decreased [Recovered/Resolved]
  - Blood chloride decreased [Unknown]

NARRATIVE: CASE EVENT DATE: 20220401
